FAERS Safety Report 7244269-7 (Version None)
Quarter: 2011Q1

REPORT INFORMATION
  Report Type: 
  Country: None (occurrence: None)
  Receive Date: 20110119
  Receipt Date: 20110119
  Transmission Date: 20110831
  Serious: Yes (Life-Threatening, Hospitalization)
  Sender: FDA-Public Use
  Company Number: None

PATIENT
  Age: 43 Year
  Sex: Female
  Weight: 90.7194 kg

DRUGS (2)
  1. TRAMADOL HCL [Suspect]
     Indication: FIBROMYALGIA
     Dosage: 50 MG 1 QID 047
     Route: 048
     Dates: start: 20101029, end: 20101115
  2. TRAMADOL HCL [Suspect]
     Indication: BURSITIS
     Dosage: 50 MG 1 QID 047
     Route: 048
     Dates: start: 20101029, end: 20101115

REACTIONS (13)
  - SUICIDE ATTEMPT [None]
  - DYSKINESIA [None]
  - PARANOIA [None]
  - INTENTIONAL OVERDOSE [None]
  - AMNESIA [None]
  - THINKING ABNORMAL [None]
  - CONVULSION [None]
  - TREMOR [None]
  - AGGRESSION [None]
  - HALLUCINATION [None]
  - MUSCLE SPASMS [None]
  - HYPERHIDROSIS [None]
  - DEPRESSED LEVEL OF CONSCIOUSNESS [None]
